FAERS Safety Report 20018464 (Version 1)
Quarter: 2021Q4

REPORT INFORMATION
  Report Type: Spontaneous
  Country: KR (occurrence: KR)
  Receive Date: 20211101
  Receipt Date: 20211101
  Transmission Date: 20220303
  Serious: Yes (Hospitalization, Other)
  Sender: FDA-Public Use
  Company Number: KR-AMGEN-KORSL2021166960

PATIENT
  Age: 58 Year
  Sex: Male

DRUGS (44)
  1. FILGRASTIM [Suspect]
     Active Substance: FILGRASTIM
     Indication: Product used for unknown indication
     Dosage: 300 MICROGRAM, QD
     Route: 042
     Dates: start: 20160602, end: 20160602
  2. APREPITANT [Concomitant]
     Active Substance: APREPITANT
     Indication: Product used for unknown indication
     Dosage: 150 MILLIGRAM, QD
     Route: 042
     Dates: start: 20160513, end: 20160513
  3. APREPITANT [Concomitant]
     Active Substance: APREPITANT
     Dosage: 150 MILLIGRAM, QD
     Route: 042
     Dates: start: 20160611, end: 20160611
  4. APREPITANT [Concomitant]
     Active Substance: APREPITANT
     Dosage: 150 MILLIGRAM, QD
     Route: 042
     Dates: start: 20160630, end: 20160630
  5. APREPITANT [Concomitant]
     Active Substance: APREPITANT
     Dosage: 150 MILLIGRAM, QD
     Route: 042
     Dates: start: 20160726, end: 20160726
  6. ACECLOFENAC [Concomitant]
     Active Substance: ACECLOFENAC
     Indication: Product used for unknown indication
     Dosage: 1 DOSAGE FORM, QD
     Route: 048
     Dates: start: 20160609, end: 20160609
  7. AMBROXOL [Concomitant]
     Active Substance: AMBROXOL
     Indication: Product used for unknown indication
     Dosage: 1 DOSAGE FORM, QD
     Route: 048
     Dates: start: 20160604, end: 20160621
  8. CARVEDILOL [Concomitant]
     Active Substance: CARVEDILOL
     Indication: Product used for unknown indication
     Dosage: 1 DOSAGE FORM, QD
     Route: 048
     Dates: start: 20160504, end: 20160506
  9. CICLOPIROX [Concomitant]
     Active Substance: CICLOPIROX
     Indication: Product used for unknown indication
     Dosage: 1 DOSAGE FORM, QD
     Dates: start: 20160721, end: 20160721
  10. CIPROFLOXACIN [Concomitant]
     Active Substance: CIPROFLOXACIN
     Indication: Product used for unknown indication
     Dosage: 1 DOSAGE FORM, QD
     Dates: start: 20160804, end: 20160809
  11. CISPLATIN [Concomitant]
     Active Substance: CISPLATIN
     Indication: Product used for unknown indication
     Dosage: 80 MILLIGRAM, QD
     Route: 042
     Dates: start: 20160611, end: 20160611
  12. CISPLATIN [Concomitant]
     Active Substance: CISPLATIN
     Dosage: 80 MILLIGRAM, QD
     Route: 042
     Dates: start: 20160630, end: 20160630
  13. CISPLATIN [Concomitant]
     Active Substance: CISPLATIN
     Dosage: 80 MILLIGRAM, QD
     Route: 042
     Dates: start: 20160726, end: 20160726
  14. CISPLATIN [Concomitant]
     Active Substance: CISPLATIN
     Dosage: 80 MILLIGRAM, QD
     Route: 042
     Dates: start: 20160513, end: 20160513
  15. CODEINE [Concomitant]
     Active Substance: CODEINE
     Indication: Product used for unknown indication
     Dosage: 1 DOSAGE FORM, QD
     Route: 048
     Dates: start: 20160705
  16. DEXAMETHASONE [Concomitant]
     Active Substance: DEXAMETHASONE
     Indication: Product used for unknown indication
     Dosage: 4 MILLIGRAM, QD
     Route: 048
     Dates: start: 20160727, end: 20160729
  17. DEXAMETHASONE [Concomitant]
     Active Substance: DEXAMETHASONE
     Dosage: 8 MILLIGRAM, QD
     Route: 048
     Dates: start: 20160514, end: 20160516
  18. DEXAMETHASONE [Concomitant]
     Active Substance: DEXAMETHASONE
     Dosage: 8 MILLIGRAM, QD
     Route: 048
     Dates: start: 20160612, end: 20160614
  19. DEXAMETHASONE [Concomitant]
     Active Substance: DEXAMETHASONE
     Dosage: 8 MILLIGRAM, QD
     Route: 048
     Dates: start: 20160701, end: 20160703
  20. DEXAMETHASONE [Concomitant]
     Active Substance: DEXAMETHASONE
     Dosage: 12 MILLIGRAM, QD
     Route: 048
     Dates: start: 20160513, end: 20160513
  21. DEXAMETHASONE [Concomitant]
     Active Substance: DEXAMETHASONE
     Dosage: 12 MILLIGRAM, QD
     Route: 048
     Dates: start: 20160611, end: 20160611
  22. DEXAMETHASONE [Concomitant]
     Active Substance: DEXAMETHASONE
     Dosage: 12 MILLIGRAM, QD
     Route: 048
     Dates: start: 20160630, end: 20160630
  23. DEXAMETHASONE [Concomitant]
     Active Substance: DEXAMETHASONE
     Dosage: 12 MILLIGRAM, QD
     Route: 048
     Dates: start: 20160726, end: 20160726
  24. DOXYCYCLINE [Concomitant]
     Active Substance: DOXYCYCLINE
     Indication: Product used for unknown indication
     Dosage: 1 DOSAGE FORM, QD
     Route: 048
     Dates: start: 20160609, end: 20160725
  25. ETOPOSIDE [Concomitant]
     Active Substance: ETOPOSIDE
     Indication: Product used for unknown indication
     Dosage: 115 MILLIGRAM, QD
     Route: 042
     Dates: start: 20160630, end: 20160630
  26. ETOPOSIDE [Concomitant]
     Active Substance: ETOPOSIDE
     Dosage: 115 MILLIGRAM, QD
     Route: 042
     Dates: start: 20160726, end: 20160726
  27. ETOPOSIDE [Concomitant]
     Active Substance: ETOPOSIDE
     Dosage: 155 MILLIGRAM, QD
     Route: 042
     Dates: start: 20160513, end: 20160513
  28. ETOPOSIDE [Concomitant]
     Active Substance: ETOPOSIDE
     Dosage: 155 MILLIGRAM, QD
     Route: 042
     Dates: start: 20160611, end: 20160611
  29. EZETIMIBE [Concomitant]
     Active Substance: EZETIMIBE
     Indication: Product used for unknown indication
     Dosage: 1 DOSAGE FORM, QD
     Route: 048
     Dates: start: 20160504, end: 20160506
  30. FAMOTIDINE [Concomitant]
     Active Substance: FAMOTIDINE
     Indication: Product used for unknown indication
     Dosage: 1 DOSAGE FORM, QD
     Route: 048
     Dates: start: 20160612, end: 20160616
  31. HYDROCORTISONE [Concomitant]
     Active Substance: HYDROCORTISONE
     Indication: Product used for unknown indication
     Dosage: 1 DOSAGE FORM, QD
     Route: 061
     Dates: start: 20160721, end: 20160721
  32. KETOCONAZOLE [Concomitant]
     Active Substance: KETOCONAZOLE
     Indication: Product used for unknown indication
     Dosage: 1 DOSAGE FORM, QD
     Route: 061
     Dates: start: 20160721, end: 20160721
  33. METOCLOPRAMIDE [Concomitant]
     Active Substance: METOCLOPRAMIDE
     Indication: Product used for unknown indication
     Dosage: 1 DOSAGE FORM, QD
     Route: 065
     Dates: start: 20160513, end: 20160731
  34. ANTIHISTAMINES NOS [Concomitant]
     Active Substance: ANTIHISTAMINES NOS
     Indication: Product used for unknown indication
     Dosage: 1 DOSAGE FORM, QD
     Route: 048
     Dates: start: 20160721, end: 201608
  35. PALONOSETRON [Concomitant]
     Active Substance: PALONOSETRON
     Indication: Product used for unknown indication
     Dosage: 5 MILLILITER, QD
     Route: 042
     Dates: start: 20160513, end: 20160513
  36. PALONOSETRON [Concomitant]
     Active Substance: PALONOSETRON
     Dosage: 5 MILLILITER, QD
     Route: 042
     Dates: start: 20160611, end: 20160611
  37. PALONOSETRON [Concomitant]
     Active Substance: PALONOSETRON
     Dosage: 5 MILLILITER, QD
     Route: 042
     Dates: start: 20160630, end: 20160630
  38. PALONOSETRON [Concomitant]
     Active Substance: PALONOSETRON
     Dosage: 5 MILLILITER, QD
     Route: 042
     Dates: start: 20160726, end: 20160726
  39. ACETAMINOPHEN [Concomitant]
     Active Substance: ACETAMINOPHEN
     Indication: Product used for unknown indication
     Dosage: 1 DOSAGE FORM, QD
     Route: 048
     Dates: start: 20160604, end: 20160604
  40. PREDNICARBATE [Concomitant]
     Active Substance: PREDNICARBATE
     Indication: Product used for unknown indication
     Dosage: 1 DOSAGE FORM, QD
     Route: 061
  41. PROPACETAMOL [Concomitant]
     Active Substance: PROPACETAMOL
     Indication: Product used for unknown indication
     Dosage: 1 GRAM, QD
     Route: 042
     Dates: start: 20160804, end: 20160804
  42. PROPIONIC ACID [Concomitant]
     Active Substance: PROPIONIC ACID
     Indication: Product used for unknown indication
     Dosage: 1 DOSAGE FORM, QD
     Route: 048
     Dates: start: 20160804, end: 20160809
  43. RANITIDINE [Concomitant]
     Active Substance: RANITIDINE
     Indication: Product used for unknown indication
     Dosage: 1 DOSAGE FORM, QD
     Route: 048
     Dates: start: 20160804, end: 20160809
  44. ROSUVASTATIN [Concomitant]
     Active Substance: ROSUVASTATIN
     Indication: Product used for unknown indication
     Dosage: 1 DOSAGE FORM, QD
     Route: 048
     Dates: start: 20160504, end: 20160506

REACTIONS (5)
  - Seborrhoeic dermatitis [Recovered/Resolved]
  - Hiccups [Recovered/Resolved]
  - Stomatitis [Recovered/Resolved]
  - Neutropenia [Recovered/Resolved]
  - Pyrexia [Recovered/Resolved]

NARRATIVE: CASE EVENT DATE: 20160602
